FAERS Safety Report 4879373-1 (Version None)
Quarter: 2006Q1

REPORT INFORMATION
  Report Type: 
  Country: None (occurrence: None)
  Receive Date: 20060112
  Receipt Date: 20051003
  Transmission Date: 20060701
  Serious: Yes (Death, Hospitalization, Other)
  Sender: FDA-Public Use
  Company Number: US-MERCK-0510USA02711

PATIENT
  Age: 46 Year
  Sex: Male
  Weight: 68 kg

DRUGS (3)
  1. VIOXX [Suspect]
     Indication: ARTHRITIS
     Route: 048
     Dates: start: 20010116, end: 20030829
  2. LANTUS [Concomitant]
     Route: 065
  3. PEPCID [Concomitant]
     Route: 065

REACTIONS (15)
  - ABDOMINAL DISCOMFORT [None]
  - ACIDOSIS [None]
  - ACUTE RESPIRATORY FAILURE [None]
  - ANOXIC ENCEPHALOPATHY [None]
  - BLOOD GLUCOSE INCREASED [None]
  - BRAIN STEM INFARCTION [None]
  - CARDIO-RESPIRATORY ARREST [None]
  - COMA [None]
  - DROP ATTACKS [None]
  - FALL [None]
  - GASTROINTESTINAL HAEMORRHAGE [None]
  - ISCHAEMIC STROKE [None]
  - PNEUMONIA [None]
  - PNEUMONIA ASPIRATION [None]
  - STAPHYLOCOCCAL SEPSIS [None]
